FAERS Safety Report 4503490-9 (Version None)
Quarter: 2004Q4

REPORT INFORMATION
  Report Type: 
  Country: None (occurrence: None)
  Receive Date: 20041112
  Receipt Date: 20041102
  Transmission Date: 20050328
  Serious: Yes (Hospitalization)
  Sender: FDA-Public Use
  Company Number: 2004242428IL

PATIENT
  Age: 89 Year
  Sex: Male

DRUGS (9)
  1. CLARITHROMYCIN [Suspect]
     Indication: HELICOBACTER INFECTION
     Dosage: 1 G, QD,
  2. GLIBENKLAMID NM PHARMA (GLYBURIDE) TABLET [Suspect]
     Indication: DIABETES MELLITUS NON-INSULIN-DEPENDENT
     Dosage: 5 MG, QD,
  3. LEUPROLIDE ACETATE [Concomitant]
  4. CITALOPRAM HYDROBROMDE (CITALOPRAM HYDROBROMIDE) [Concomitant]
  5. DOXAZOSIN MESYLATE [Concomitant]
  6. ATENOLOL [Concomitant]
  7. AMILORIDE W/HYDROCHLOROTHIAZIDE [Concomitant]
  8. AMOXICILLIN [Concomitant]
  9. OMEPRAZOLE [Concomitant]

REACTIONS (7)
  - BLOOD SODIUM DECREASED [None]
  - COMA [None]
  - DRUG INTERACTION [None]
  - DUODENAL ULCER [None]
  - HELICOBACTER INFECTION [None]
  - HYPOGLYCAEMIA [None]
  - LEUKOCYTOSIS [None]
